FAERS Safety Report 11713054 (Version 9)
Quarter: 2017Q1

REPORT INFORMATION
  Report Type: Spontaneous
  Country: US (occurrence: US)
  Receive Date: 20151109
  Receipt Date: 20170228
  Transmission Date: 20170428
  Serious: Yes (Other)
  Sender: FDA-Public Use
  Company Number: PHEH2015US022810

PATIENT
  Age: 25 Year
  Sex: Female
  Weight: 63.49 kg

DRUGS (1)
  1. ZOFRAN [Suspect]
     Active Substance: ONDANSETRON HYDROCHLORIDE
     Indication: VOMITING IN PREGNANCY
     Dosage: 4 MG, Q4H PRN
     Route: 048
     Dates: start: 20100913, end: 201103

REACTIONS (16)
  - Emotional distress [Unknown]
  - Pain [Unknown]
  - Injury [Unknown]
  - Fatigue [Unknown]
  - Normal newborn [Unknown]
  - Maternal exposure during pregnancy [Unknown]
  - Pollakiuria [Unknown]
  - Dyspnoea [Unknown]
  - Amenorrhoea [Unknown]
  - Tenderness [Unknown]
  - Micturition urgency [Unknown]
  - Premature delivery [Unknown]
  - Weight increased [Unknown]
  - Anxiety [Unknown]
  - Constipation [Unknown]
  - Product use issue [Unknown]

NARRATIVE: CASE EVENT DATE: 20110310
